FAERS Safety Report 15715049 (Version 1)
Quarter: 2018Q4

REPORT INFORMATION
  Report Type: Other
  Country: CA (occurrence: CA)
  Receive Date: 20181212
  Receipt Date: 20181212
  Transmission Date: 20190205
  Serious: Yes (Other)
  Sender: FDA-Public Use
  Company Number: CA-LANTHEUS-LMI-2014-00112

PATIENT
  Age: 44 Year
  Sex: Female
  Weight: 52 kg

DRUGS (4)
  1. GALLIUM [Suspect]
     Active Substance: GALLIUM CITRATE GA-67
     Indication: SCAN GALLIUM
     Dosage: 3 MCI, UNK
     Route: 042
     Dates: start: 20140317, end: 20140317
  2. MORPHINE [Concomitant]
     Active Substance: MORPHINE
     Indication: PRODUCT USED FOR UNKNOWN INDICATION
     Route: 061
     Dates: end: 201402
  3. OXYCODONE [Concomitant]
     Active Substance: OXYCODONE
     Indication: PRODUCT USED FOR UNKNOWN INDICATION
     Route: 065
     Dates: end: 201402
  4. LYRICA [Concomitant]
     Active Substance: PREGABALIN
     Indication: BACK PAIN
     Route: 065
     Dates: end: 20140312

REACTIONS (6)
  - Dysphagia [Recovering/Resolving]
  - Eye swelling [Recovering/Resolving]
  - Swelling face [Recovering/Resolving]
  - Rash pruritic [Recovering/Resolving]
  - Peripheral swelling [Recovering/Resolving]
  - Contrast media reaction [Recovering/Resolving]

NARRATIVE: CASE EVENT DATE: 20140317
